FAERS Safety Report 4297226-7 (Version None)
Quarter: 2004Q1

REPORT INFORMATION
  Report Type: 
  Country: None (occurrence: None)
  Receive Date: 20040217
  Receipt Date: 20040209
  Transmission Date: 20041129
  Serious: Yes (Other)
  Sender: FDA-Public Use
  Company Number: 03-12-1595

PATIENT
  Age: 42 Year
  Sex: Female

DRUGS (2)
  1. CLOZAPINE [Suspect]
     Dosage: 125-200MG QD ORAL
     Route: 048
     Dates: start: 20000601, end: 20031222
  2. CHEMOTHERAPY [Suspect]
     Indication: BREAST CANCER
     Dates: start: 20040101

REACTIONS (3)
  - AGRANULOCYTOSIS [None]
  - BREAST CANCER [None]
  - WHITE BLOOD CELL COUNT DECREASED [None]
